FAERS Safety Report 13233771 (Version 1)
Quarter: 2017Q1

REPORT INFORMATION
  Report Type: Spontaneous
  Country: US (occurrence: US)
  Receive Date: 20170215
  Receipt Date: 20170215
  Transmission Date: 20170428
  Serious: No
  Sender: FDA-Public Use
  Company Number: US-CIPLA LTD.-2016US22604

PATIENT

DRUGS (5)
  1. LYRICA [Suspect]
     Active Substance: PREGABALIN
     Indication: NERVE INJURY
     Dosage: 150 MG, BID
     Route: 048
  2. ROBAXIN [Concomitant]
     Active Substance: METHOCARBAMOL
     Indication: MUSCLE SPASMS
     Dosage: 750 MG, BID
     Route: 048
  3. GABAPENTIN. [Suspect]
     Active Substance: GABAPENTIN
     Indication: NERVE INJURY
     Dosage: UNK
     Route: 065
     Dates: start: 2014
  4. GABAPENTIN. [Suspect]
     Active Substance: GABAPENTIN
     Dosage: 600 MG, TID
     Route: 048
     Dates: start: 2014
  5. MORPHINE ER [Concomitant]
     Active Substance: MORPHINE
     Indication: PAIN
     Dosage: 15 MG, TID
     Route: 048

REACTIONS (1)
  - Drug ineffective [Unknown]
